FAERS Safety Report 15825254 (Version 1)
Quarter: 2019Q1

REPORT INFORMATION
  Report Type: Spontaneous
  Country: US (occurrence: US)
  Receive Date: 20190115
  Receipt Date: 20190115
  Transmission Date: 20190417
  Serious: No
  Sender: FDA-Public Use
  Company Number: US-PFIZER INC-2019013380

PATIENT
  Age: 79 Year
  Sex: Female
  Weight: 86.18 kg

DRUGS (1)
  1. ADVIL [Suspect]
     Active Substance: IBUPROFEN
     Indication: BACK PAIN
     Dosage: UNK UNK, 1X/DAY
     Route: 048
     Dates: start: 20190105

REACTIONS (2)
  - Heart rate increased [Not Recovered/Not Resolved]
  - Expired product administered [Unknown]

NARRATIVE: CASE EVENT DATE: 20190105
